FAERS Safety Report 5443745-7 (Version None)
Quarter: 2007Q3

REPORT INFORMATION
  Report Type: 
  Country: None (occurrence: None)
  Receive Date: 20070905
  Receipt Date: 20070829
  Transmission Date: 20080115
  Serious: Yes (Hospitalization)
  Sender: FDA-Public Use
  Company Number: FR-ABBOTT-01P-056-0111696-00

PATIENT
  Sex: Male

DRUGS (2)
  1. DEPAKENE [Suspect]
     Indication: EPILEPSY
     Route: 048
  2. ETHOSUXIMIDE [Concomitant]
     Indication: EPILEPSY

REACTIONS (3)
  - HIV INFECTION [None]
  - PRIAPISM [None]
  - PYREXIA [None]
